FAERS Safety Report 6887603-X (Version None)
Quarter: 2010Q3

REPORT INFORMATION
  Report Type: 
  Country: None (occurrence: None)
  Receive Date: 20100708
  Receipt Date: 20091217
  Transmission Date: 20110219
  Serious: Yes (Other)
  Sender: FDA-Public Use
  Company Number: 2009312004

PATIENT
  Age: 62 Year
  Sex: Male
  Weight: 80 kg

DRUGS (6)
  1. CHANTIX [Suspect]
     Dosage: ORAL
     Route: 048
     Dates: start: 20080522, end: 20080529
  2. LIPITOR [Concomitant]
  3. PLAVIX [Concomitant]
  4. CARVEDILOL [Concomitant]
  5. RAMIPRIL [Concomitant]
  6. ASPIRIN [Concomitant]

REACTIONS (1)
  - HYPERSENSITIVITY [None]
